FAERS Safety Report 6206872-2 (Version None)
Quarter: 2009Q2

REPORT INFORMATION
  Report Type: 
  Country: None (occurrence: None)
  Receive Date: 20090528
  Receipt Date: 20090518
  Transmission Date: 20091009
  Serious: Yes (Other)
  Sender: FDA-Public Use
  Company Number: JP-WATSON-2009-03563

PATIENT
  Age: 50 Year
  Sex: Male

DRUGS (1)
  1. PREDNISOLONE (WATSON LABORATORIES) [Suspect]
     Indication: CARDIAC SARCOIDOSIS
     Dosage: UNK

REACTIONS (2)
  - CONDITION AGGRAVATED [None]
  - VENTRICULAR TACHYCARDIA [None]
